FAERS Safety Report 4273799-5 (Version None)
Quarter: 2004Q1

REPORT INFORMATION
  Report Type: 
  Country: None (occurrence: None)
  Receive Date: 20040115
  Receipt Date: 20031230
  Transmission Date: 20041129
  Serious: Yes (Hospitalization)
  Sender: FDA-Public Use
  Company Number: 188165

PATIENT
  Age: 46 Year
  Sex: Male
  Weight: 108.8633 kg

DRUGS (14)
  1. AVONEX [Suspect]
     Indication: MULTIPLE SCLEROSIS
     Dosage: 30 MCG QW IM
     Route: 030
     Dates: start: 20030901, end: 20030901
  2. AVONEX [Suspect]
     Indication: MULTIPLE SCLEROSIS
     Dosage: 30 MCG QW IM
     Route: 030
     Dates: start: 20030901, end: 20031101
  3. AVONEX [Suspect]
     Indication: MULTIPLE SCLEROSIS
     Dosage: 30 MCG QW IM
     Route: 030
     Dates: start: 20031101
  4. LISINOPRIL [Concomitant]
  5. PROVIGIL [Concomitant]
  6. LOVASTATIN [Concomitant]
  7. TEMAZEPAM [Concomitant]
  8. FUROSEMIDE [Concomitant]
  9. 4-AMINOPYRIDENE [Concomitant]
  10. ZANAFLEX [Concomitant]
  11. PROZAC [Concomitant]
  12. OXYBUTYNIN [Concomitant]
  13. AZATHIOPRINE [Concomitant]
  14. CALCIUM [Concomitant]

REACTIONS (9)
  - ANKLE FRACTURE [None]
  - FALL [None]
  - FLUID RETENTION [None]
  - INFLUENZA LIKE ILLNESS [None]
  - MOBILITY DECREASED [None]
  - MULTIPLE SCLEROSIS [None]
  - OBESITY [None]
  - SPASTIC PARALYSIS [None]
  - WEIGHT INCREASED [None]
